FAERS Safety Report 25714642 (Version 1)
Quarter: 2025Q3

REPORT INFORMATION
  Report Type: Spontaneous
  Country: SG (occurrence: SG)
  Receive Date: 20250822
  Receipt Date: 20250822
  Transmission Date: 20251021
  Serious: Yes (Hospitalization, Other)
  Sender: IPCA
  Company Number: SG-IPCA LABORATORIES LIMITED-IPC-2025-SG-002277

PATIENT

DRUGS (4)
  1. VALPROATE SODIUM [Suspect]
     Active Substance: VALPROATE SODIUM
     Indication: Product used for unknown indication
     Route: 065
  2. SERTRALINE [Suspect]
     Active Substance: SERTRALINE HYDROCHLORIDE
     Indication: Product used for unknown indication
     Route: 065
  3. QUETIAPINE [Suspect]
     Active Substance: QUETIAPINE
     Indication: Product used for unknown indication
     Route: 065
  4. ESTAZOLAM [Suspect]
     Active Substance: ESTAZOLAM
     Indication: Product used for unknown indication
     Route: 065

REACTIONS (5)
  - Hyperammonaemia [Recovered/Resolved]
  - Hyperammonaemic encephalopathy [Recovered/Resolved]
  - Suicide attempt [Unknown]
  - Myoclonus [Recovered/Resolved]
  - Overdose [Unknown]
